FAERS Safety Report 6096437-8 (Version None)
Quarter: 2009Q1

REPORT INFORMATION
  Report Type: 
  Country: None (occurrence: None)
  Receive Date: 20090227
  Receipt Date: 20081219
  Transmission Date: 20090719
  Serious: No
  Sender: FDA-Public Use
  Company Number: A0761080A

PATIENT
  Age: 64 Year
  Sex: Female

DRUGS (4)
  1. LAMICTAL [Suspect]
     Indication: SCHIZOPHRENIA
     Dosage: 150MG PER DAY
     Route: 048
     Dates: start: 20070101
  2. ABILIFY [Concomitant]
  3. ZOCOR [Concomitant]
  4. ACTONEL [Concomitant]

REACTIONS (3)
  - DRY SKIN [None]
  - HAIR TEXTURE ABNORMAL [None]
  - SKIN DISORDER [None]
